FAERS Safety Report 4453917-6 (Version None)
Quarter: 2004Q3

REPORT INFORMATION
  Report Type: 
  Country: None (occurrence: None)
  Receive Date: 20040826
  Receipt Date: 20040427
  Transmission Date: 20050211
  Serious: No
  Sender: FDA-Public Use
  Company Number: WAES 0404USA02323

PATIENT
  Age: 51 Year
  Sex: Male

DRUGS (3)
  1. ZETIA [Suspect]
     Indication: HYPERCHOLESTEROLAEMIA
     Dosage: 10 MG/DAILY/PO
     Route: 048
     Dates: start: 20040401, end: 20010404
  2. LIPITOR [Concomitant]
  3. NIASPAN [Concomitant]

REACTIONS (1)
  - VERTIGO [None]
